FAERS Safety Report 5002360-X (Version None)
Quarter: 2006Q2

REPORT INFORMATION
  Report Type: 
  Country: None (occurrence: None)
  Receive Date: 20060512
  Receipt Date: 20060428
  Transmission Date: 20061013
  Serious: Yes (Hospitalization)
  Sender: FDA-Public Use
  Company Number: 2006RR-02159

PATIENT
  Age: 52 Year
  Sex: Female

DRUGS (1)
  1. ETODOLAC [Suspect]
     Dosage: 600 MG, QD, ORAL
     Route: 048
     Dates: end: 20060330

REACTIONS (1)
  - ISCHAEMIC STROKE [None]
